FAERS Safety Report 9934688 (Version 1)
Quarter: 2014Q1

REPORT INFORMATION
  Report Type: Spontaneous
  Country: US (occurrence: US)
  Receive Date: 20140228
  Receipt Date: 20140228
  Transmission Date: 20141002
  Serious: No
  Sender: FDA-Public Use
  Company Number: US-TEVA-465757USA

PATIENT
  Sex: Female
  Weight: 86.26 kg

DRUGS (6)
  1. QVAR [Suspect]
     Indication: ASTHMA
     Dates: start: 20140217
  2. QVAR [Suspect]
     Indication: HYPERSENSITIVITY
  3. SINGULAIR [Concomitant]
     Indication: ASTHMA
  4. THYROID MEDICATION [Concomitant]
     Indication: THYROID DISORDER
  5. CLONAZEPAM [Concomitant]
     Indication: SLEEP DISORDER
  6. SIMVASTATIN [Concomitant]
     Indication: BLOOD CHOLESTEROL INCREASED

REACTIONS (5)
  - Mouth ulceration [Not Recovered/Not Resolved]
  - Lip exfoliation [Not Recovered/Not Resolved]
  - Oral pain [Not Recovered/Not Resolved]
  - Lip exfoliation [Not Recovered/Not Resolved]
  - Candida infection [Unknown]
